FAERS Safety Report 14227889 (Version 3)
Quarter: 2018Q1

REPORT INFORMATION
  Report Type: Spontaneous
  Country: JP (occurrence: JP)
  Receive Date: 20171127
  Receipt Date: 20180105
  Transmission Date: 20180508
  Serious: Yes (Death, Other)
  Sender: FDA-Public Use
  Company Number: JP-009507513-1711JPN001890J

PATIENT
  Age: 52 Year
  Sex: Male
  Weight: 66 kg

DRUGS (22)
  1. ACELIO [Concomitant]
     Active Substance: ACETAMINOPHEN
     Indication: ANTIPYRESIS
     Dosage: 0.5 G, PRN
     Route: 051
     Dates: start: 20160707, end: 20160721
  2. NEOLAMIN MULTI V [Concomitant]
     Active Substance: HYDROXOCOBALAMIN\PYRIDOXINE HYDROCHLORIDE\THIAMINE HYDROCHLORIDE
     Indication: FLUID REPLACEMENT
     Dosage: 1 DF, QD
     Route: 051
     Dates: start: 20160716
  3. PREDONINE [Concomitant]
     Active Substance: PREDNISOLONE
     Indication: ORGANISING PNEUMONIA
     Dosage: 10 MG, QD
     Route: 051
     Dates: start: 20160711, end: 20160801
  4. POLARAMINE [Concomitant]
     Active Substance: DEXCHLORPHENIRAMINE MALEATE
     Indication: ALLERGY PROPHYLAXIS
     Dosage: 5 MG, PRN
     Route: 051
     Dates: start: 20160711
  5. ROHYPNOL [Concomitant]
     Active Substance: FLUNITRAZEPAM
     Indication: INSOMNIA
     Dosage: 2 MG, PRN
     Route: 051
     Dates: start: 20160720, end: 20160722
  6. GLUCOSE BAXTER [Concomitant]
     Active Substance: DEXTROSE
     Indication: FLUID REPLACEMENT
     Dosage: 0.7 L, QD
     Route: 051
     Dates: start: 20160716
  7. NEUTROGIN [Concomitant]
     Active Substance: LENOGRASTIM
     Indication: NEUTROPENIA
     Dosage: 100 MICROGRAM, QD
     Route: 058
     Dates: start: 20160719, end: 20160726
  8. AMIPAREN [Concomitant]
     Active Substance: AMINO ACIDS
     Indication: FLUID REPLACEMENT
     Dosage: 0.4 L, QD
     Route: 051
     Dates: start: 20160716
  9. CANCIDAS [Suspect]
     Active Substance: CASPOFUNGIN ACETATE
     Indication: BRONCHOPULMONARY ASPERGILLOSIS
     Dosage: 50 MG, QD
     Route: 041
     Dates: start: 20160717, end: 20160811
  10. MEROPENEM. [Concomitant]
     Active Substance: MEROPENEM
     Indication: FEBRILE NEUTROPENIA
     Dosage: 1 G, TID
     Route: 051
     Dates: start: 20160706, end: 20160718
  11. VANCOMYCIN [Concomitant]
     Active Substance: VANCOMYCIN
     Indication: FEBRILE NEUTROPENIA
     Dosage: 0.5 G, BID
     Route: 051
     Dates: start: 20160710, end: 20160729
  12. FUROSEMIDE. [Concomitant]
     Active Substance: FUROSEMIDE
     Indication: OEDEMA PERIPHERAL
     Dosage: 20 MG, BID
     Route: 051
     Dates: start: 20160710, end: 20160716
  13. CANCIDAS [Suspect]
     Active Substance: CASPOFUNGIN ACETATE
     Indication: BRONCHOPULMONARY ASPERGILLOSIS
     Dosage: 70 MG, QD
     Route: 041
     Dates: start: 20160716, end: 20160716
  14. PANTHENYL [Concomitant]
     Indication: CONSTIPATION
     Dosage: 2 G, QD
     Route: 051
     Dates: start: 20160710
  15. CRAVIT [Concomitant]
     Active Substance: LEVOFLOXACIN
     Indication: FEBRILE NEUTROPENIA
     Dosage: 0.5 G, QD
     Route: 051
     Dates: start: 20160718, end: 20160803
  16. TAKEPRON [Concomitant]
     Active Substance: LANSOPRAZOLE
     Indication: PROPHYLAXIS AGAINST GASTROINTESTINAL ULCER
     Dosage: 30 MG, BID
     Route: 051
     Dates: start: 20160710
  17. OXIFAST [Concomitant]
     Active Substance: OXYCODONE
     Indication: STOMATITIS
     Dosage: 20 MG, QD
     Route: 051
     Dates: start: 20160710, end: 20160802
  18. SERENACE [Concomitant]
     Active Substance: HALOPERIDOL
     Indication: INSOMNIA
     Dosage: 5 MG, QD
     Route: 051
     Dates: start: 20160722, end: 20160809
  19. AMBISOME [Suspect]
     Active Substance: AMPHOTERICIN B
     Indication: BRONCHOPULMONARY ASPERGILLOSIS
     Dosage: 300 MG, QD
     Route: 051
     Dates: start: 20160730
  20. MICAFUNGIN SODIUM [Concomitant]
     Active Substance: MICAFUNGIN SODIUM
     Indication: BRONCHOPULMONARY ASPERGILLOSIS
     Dosage: 150 MG, UNK
     Route: 041
     Dates: start: 20160709, end: 20160715
  21. ROPION [Concomitant]
     Active Substance: FLURBIPROFEN AXETIL
     Indication: STOMATITIS
     Dosage: 50 MG, BID
     Route: 051
     Dates: start: 20160710, end: 20160811
  22. ELEMENMIC [Concomitant]
     Active Substance: CUPRIC SULFATE\FERRIC CHLORIDE\MANGANESE CHLORIDE\POTASSIUM IODIDE\ZINC SULFATE
     Indication: FLUID REPLACEMENT
     Dosage: 2 ML, QD
     Route: 051
     Dates: start: 20160716

REACTIONS (9)
  - Pulmonary alveolar haemorrhage [Fatal]
  - Herpes zoster [Recovered/Resolved]
  - Pneumocystis jirovecii pneumonia [Fatal]
  - Pneumonia cytomegaloviral [Fatal]
  - Hypokalaemia [Recovered/Resolved]
  - Pneumonia [Fatal]
  - Organising pneumonia [Fatal]
  - Drug ineffective [Unknown]
  - Drug-induced liver injury [Not Recovered/Not Resolved]

NARRATIVE: CASE EVENT DATE: 20160722
